FAERS Safety Report 11410703 (Version 12)
Quarter: 2017Q2

REPORT INFORMATION
  Report Type: Spontaneous
  Country: US (occurrence: US)
  Receive Date: 20150824
  Receipt Date: 20170418
  Transmission Date: 20170829
  Serious: Yes (Hospitalization)
  Sender: FDA-Public Use
  Company Number: US-PFIZER INC-2015268354

PATIENT
  Age: 71 Year
  Sex: Female
  Weight: 58.96 kg

DRUGS (8)
  1. SUTENT [Suspect]
     Active Substance: SUNITINIB MALATE
     Indication: NEOPLASM MALIGNANT
     Dosage: 25 MG, CYCLIC(1 WEEK OFF 9-WEEKS ON 4-WEEKS OF 2-WEEKS)
     Dates: start: 201508
  2. SUTENT [Suspect]
     Active Substance: SUNITINIB MALATE
     Dosage: 25 MG, CYCLIC (4 WEEKS ON AND TWO WEEKS OFF)
     Dates: end: 20160123
  3. SUTENT [Suspect]
     Active Substance: SUNITINIB MALATE
     Dosage: 12.5 MG, CYCLIC (28 DAYS ON/14 DAYS OFF)
     Dates: start: 201703
  4. IMODIUM [Concomitant]
     Active Substance: LOPERAMIDE HYDROCHLORIDE
     Dosage: UNK
  5. SUTENT [Suspect]
     Active Substance: SUNITINIB MALATE
     Indication: NEOPLASM OF THYMUS
     Dosage: 25 MG, CYCLIC (DAILY, 28 DAYS ON/14 DAYS OFF)
     Dates: start: 20150711
  6. XANAX [Concomitant]
     Active Substance: ALPRAZOLAM
     Indication: SINUS DISORDER
     Dosage: UNK
  7. FLUCONAZOLE. [Concomitant]
     Active Substance: FLUCONAZOLE
     Dosage: UNK
     Dates: end: 20150711
  8. PROZAC [Concomitant]
     Active Substance: FLUOXETINE HYDROCHLORIDE
     Indication: SINUS DISORDER
     Dosage: UNK

REACTIONS (25)
  - Oral discomfort [Recovering/Resolving]
  - Skin disorder [Not Recovered/Not Resolved]
  - Product use in unapproved indication [Unknown]
  - Drug dose omission [Unknown]
  - Nausea [Unknown]
  - Gastric disorder [Unknown]
  - Dysgeusia [Unknown]
  - Gingival discomfort [Unknown]
  - Fungal skin infection [Not Recovered/Not Resolved]
  - Oral pain [Not Recovered/Not Resolved]
  - Alopecia [Unknown]
  - Laboratory test abnormal [Unknown]
  - Face injury [Unknown]
  - Asthenia [Unknown]
  - Platelet count decreased [Unknown]
  - Upper respiratory tract infection [Unknown]
  - Diarrhoea [Recovering/Resolving]
  - Tongue discomfort [Unknown]
  - Dry skin [Unknown]
  - Decreased appetite [Unknown]
  - Fall [Unknown]
  - Weight decreased [Recovering/Resolving]
  - Temperature intolerance [Unknown]
  - Lip injury [Unknown]
  - Oral fungal infection [Recovering/Resolving]
